FAERS Safety Report 8551134 (Version 4)
Quarter: 2012Q4

REPORT INFORMATION
  Report Type: 
  Country: US (occurrence: US)
  Receive Date: 20120508
  Receipt Date: 20121004
  Transmission Date: 20130627
  Serious: Yes (Death, Hospitalization)
  Sender: FDA-Public Use
  Company Number: US-BRISTOL-MYERS SQUIBB COMPANY-16554636

PATIENT
  Age: 54 Year
  Sex: Female

DRUGS (1)
  1. YERVOY [Suspect]
     Indication: METASTATIC MALIGNANT MELANOMA
     Dosage: total cycles 2 duration: over 90 mins
     Route: 042
     Dates: start: 20111201

REACTIONS (5)
  - Death [Fatal]
  - Diarrhoea [Unknown]
  - Depression [Unknown]
  - Confusional state [Unknown]
  - Constipation [Unknown]
